FAERS Safety Report 24590310 (Version 2)
Quarter: 2025Q2

REPORT INFORMATION
  Report Type: Spontaneous
  Country: FR (occurrence: FR)
  Receive Date: 20241107
  Receipt Date: 20250502
  Transmission Date: 20250717
  Serious: Yes (Hospitalization, Other)
  Sender: MYLAN
  Company Number: None

PATIENT
  Age: 42 Year
  Sex: Male
  Weight: 78.4 kg

DRUGS (8)
  1. PREDNISONE [Suspect]
     Active Substance: PREDNISONE
     Indication: Neurosarcoidosis
     Dosage: 60 MILLIGRAM, QD (60 MG/D OFF-LABEL USE)
     Dates: start: 202409
  2. PREDNISONE [Suspect]
     Active Substance: PREDNISONE
     Dosage: 60 MILLIGRAM, QD (60 MG/D OFF-LABEL USE)
     Route: 048
     Dates: start: 202409
  3. PREDNISONE [Suspect]
     Active Substance: PREDNISONE
     Dosage: 60 MILLIGRAM, QD (60 MG/D OFF-LABEL USE)
     Route: 048
     Dates: start: 202409
  4. PREDNISONE [Suspect]
     Active Substance: PREDNISONE
     Dosage: 60 MILLIGRAM, QD (60 MG/D OFF-LABEL USE)
     Dates: start: 202409
  5. INFLIXIMAB [Suspect]
     Active Substance: INFLIXIMAB
     Indication: Neurosarcoidosis
     Dates: start: 20241001, end: 20241001
  6. INFLIXIMAB [Suspect]
     Active Substance: INFLIXIMAB
     Route: 042
     Dates: start: 20241001, end: 20241001
  7. INFLIXIMAB [Suspect]
     Active Substance: INFLIXIMAB
     Route: 042
     Dates: start: 20241001, end: 20241001
  8. INFLIXIMAB [Suspect]
     Active Substance: INFLIXIMAB
     Dates: start: 20241001, end: 20241001

REACTIONS (3)
  - Listeriosis [Not Recovered/Not Resolved]
  - Off label use [Unknown]
  - Intentional product use issue [Unknown]

NARRATIVE: CASE EVENT DATE: 20240901
